FAERS Safety Report 10056315 (Version 1)
Quarter: 2014Q2

REPORT INFORMATION
  Report Type: Spontaneous
  Country: US (occurrence: None)
  Receive Date: 20140401
  Receipt Date: 20140401
  Transmission Date: 20141212
  Serious: Yes (Life-Threatening, Other)
  Sender: FDA-Public Use
  Company Number: 001699140A

PATIENT
  Age: 48 Year
  Sex: Female

DRUGS (3)
  1. PROACTIV RENEWING CLEANSER [Suspect]
     Indication: ACNE
     Dosage: DERMAL
     Dates: start: 20140210, end: 20140213
  2. PROACTIV REPAIRING TREATMENT [Suspect]
     Indication: ACNE
     Dosage: DERMAL
     Dates: start: 20140210, end: 20140213
  3. DIABETES MEDICATIONS [Concomitant]

REACTIONS (5)
  - Swelling face [None]
  - Nasal congestion [None]
  - Lip swelling [None]
  - Throat irritation [None]
  - Dyspnoea [None]
